FAERS Safety Report 5079070-6 (Version None)
Quarter: 2006Q3

REPORT INFORMATION
  Report Type: 
  Country: None (occurrence: None)
  Receive Date: 20060808
  Receipt Date: 20060726
  Transmission Date: 20061208
  Serious: Yes (Other)
  Sender: FDA-Public Use
  Company Number: 2006092863

PATIENT
  Age: 74 Year
  Sex: Male
  Weight: 97.0698 kg

DRUGS (4)
  1. SUTENT [Suspect]
     Indication: DRUG USE FOR UNKNOWN INDICATION
     Dosage: 50 MG (50 MG, 1 IN 1 D)
  2. ALL OTHER THERAPEUTIC PRODUCTS [Concomitant]
  3. MEGACE [Concomitant]
  4. PEPCID AC [Concomitant]

REACTIONS (14)
  - ANOREXIA [None]
  - BLOOD TEST ABNORMAL [None]
  - CHILLS [None]
  - DEPRESSION [None]
  - DYSGEUSIA [None]
  - DYSPEPSIA [None]
  - FEELING COLD [None]
  - GINGIVAL PAIN [None]
  - LUNG DISORDER [None]
  - ORAL INTAKE REDUCED [None]
  - ORAL PAIN [None]
  - PANIC REACTION [None]
  - WEIGHT DECREASED [None]
  - YELLOW SKIN [None]
